FAERS Safety Report 15887653 (Version 1)
Quarter: 2019Q1

REPORT INFORMATION
  Report Type: Spontaneous
  Country: PL (occurrence: PL)
  Receive Date: 20190130
  Receipt Date: 20190130
  Transmission Date: 20190417
  Serious: Yes (Other)
  Sender: FDA-Public Use
  Company Number: PL-ACCORD-103258

PATIENT
  Age: 78 Year
  Sex: Female

DRUGS (2)
  1. TACROLIMUS. [Suspect]
     Active Substance: TACROLIMUS
     Indication: ECTROPION OF CERVIX
     Route: 061
  2. RETINOL/TOCOPHERYL ACETATE [Suspect]
     Active Substance: RETINOL\TOCOPHEROL
     Indication: HYPERKERATOSIS
     Route: 061

REACTIONS (3)
  - Lymphopenia [Unknown]
  - Blood glucose increased [Unknown]
  - Red blood cell sedimentation rate increased [Unknown]
